FAERS Safety Report 6984104-5 (Version None)
Quarter: 2010Q3

REPORT INFORMATION
  Report Type: 
  Country: None (occurrence: None)
  Receive Date: 20100915
  Receipt Date: 20090612
  Transmission Date: 20110219
  Serious: No
  Sender: FDA-Public Use
  Company Number: US-WYE-H09747209

PATIENT
  Age: 44 Year
  Sex: Female
  Weight: 54.48 kg

DRUGS (1)
  1. ADVIL PM [Suspect]
     Indication: INSOMNIA
     Dosage: 2 CAPSULES AS NEEDED
     Route: 048
     Dates: start: 20090401, end: 20090601

REACTIONS (1)
  - FOREIGN BODY [None]
